FAERS Safety Report 13074665 (Version 1)
Quarter: 2016Q4

REPORT INFORMATION
  Report Type: Spontaneous
  Country: US (occurrence: US)
  Receive Date: 20161230
  Receipt Date: 20161230
  Transmission Date: 20170207
  Serious: No
  Sender: FDA-Public Use
  Company Number: US-TEVA-652317USA

PATIENT
  Age: 84 Year
  Sex: Male
  Weight: 59.02 kg

DRUGS (1)
  1. TRAZODONE [Suspect]
     Active Substance: TRAZODONE HYDROCHLORIDE
     Indication: SLEEP DISORDER THERAPY
     Dosage: 1-2 TABLETS AT BEDTIME
     Dates: start: 20160411, end: 20160412

REACTIONS (5)
  - Blood pressure increased [Unknown]
  - Extrasystoles [Unknown]
  - Off label use [Unknown]
  - Heart rate increased [Unknown]
  - Intentional product use issue [Unknown]

NARRATIVE: CASE EVENT DATE: 20160311
